FAERS Safety Report 7421468 (Version 3)
Quarter: 2013Q1

REPORT INFORMATION
  Report Type: Spontaneous
  Country: US (occurrence: US)
  Receive Date: 20100616
  Receipt Date: 20130311
  Transmission Date: 20140127
  Serious: No
  Sender: FDA-Public Use
  Company Number: US-ASTRAZENECA-2009SE23232

PATIENT
  Age: 63 Year
  Sex: Female

DRUGS (7)
  1. RHINOCORT AQUA [Suspect]
     Indication: EXOSTOSIS
     Dosage: 4 SPRAYS DAILY
     Route: 045
     Dates: start: 20090930
  2. RHINOCORT AQUA [Suspect]
     Indication: NASAL CONGESTION
     Dosage: 4 SPRAYS DAILY
     Route: 045
     Dates: start: 20090930
  3. RHINOCORT AQUA [Suspect]
     Indication: SINUS CONGESTION
     Dosage: 4 SPRAYS DAILY
     Route: 045
     Dates: start: 20090930
  4. RHINOCORT AQUA [Suspect]
     Indication: EXOSTOSIS
     Dosage: 1 SPRAY IN RIGHT NOSTRIL ONLY
     Route: 045
  5. RHINOCORT AQUA [Suspect]
     Indication: NASAL CONGESTION
     Dosage: 1 SPRAY IN RIGHT NOSTRIL ONLY
     Route: 045
  6. RHINOCORT AQUA [Suspect]
     Indication: SINUS CONGESTION
     Dosage: 1 SPRAY IN RIGHT NOSTRIL ONLY
     Route: 045
  7. NASONEX [Suspect]
     Route: 065

REACTIONS (7)
  - Condition aggravated [Unknown]
  - Sinus headache [Unknown]
  - Sinusitis [Unknown]
  - Mucosal dryness [Unknown]
  - Intentional drug misuse [Unknown]
  - Off label use [Unknown]
  - Drug ineffective [Unknown]
